FAERS Safety Report 21138109 (Version 2)
Quarter: 2022Q3

REPORT INFORMATION
  Report Type: Spontaneous
  Country: US (occurrence: US)
  Receive Date: 20220727
  Receipt Date: 20220823
  Transmission Date: 20221027
  Serious: Yes (Hospitalization, Other)
  Sender: FDA-Public Use
  Company Number: US-SA-SAC20220726000355

PATIENT
  Age: 70 Year
  Sex: Female

DRUGS (1)
  1. DUPIXENT [Suspect]
     Active Substance: DUPILUMAB
     Indication: Dermatitis atopic
     Dosage: 300 MG QOW
     Route: 058
     Dates: start: 20220223

REACTIONS (6)
  - Hospitalisation [Unknown]
  - Cellulitis [Recovered/Resolved]
  - Vision blurred [Unknown]
  - Asthenopia [Unknown]
  - Sinusitis [Unknown]
  - Rash papular [Unknown]

NARRATIVE: CASE EVENT DATE: 20220501
